FAERS Safety Report 20941826 (Version 1)
Quarter: 2022Q2

REPORT INFORMATION
  Report Type: Spontaneous
  Country: US (occurrence: US)
  Receive Date: 20220610
  Receipt Date: 20220610
  Transmission Date: 20220720
  Serious: No
  Sender: FDA-Public Use
  Company Number: US-STRIDES ARCOLAB LIMITED-2022SP003231

PATIENT
  Age: 57 Year
  Sex: Male

DRUGS (4)
  1. PREDNISOLONE [Suspect]
     Active Substance: PREDNISOLONE
     Indication: Autoimmune pancreatitis
     Dosage: UNK
     Route: 065
     Dates: start: 201808
  2. PREDNISOLONE [Suspect]
     Active Substance: PREDNISOLONE
     Indication: Nephropathy
     Dosage: UNK  (TAPPERED OFF)
     Route: 065
     Dates: start: 202009
  3. PREDNISOLONE [Suspect]
     Active Substance: PREDNISOLONE
     Dosage: 1 MILLIGRAM/KILOGRAM
     Route: 065
     Dates: start: 20201207
  4. PREDNISOLONE [Suspect]
     Active Substance: PREDNISOLONE
     Dosage: 1.85 MILLIGRAM/KILOGRAM (HIGH-DOSE STEROIDS)
     Route: 065

REACTIONS (1)
  - Glycosylated haemoglobin increased [Unknown]
